FAERS Safety Report 7897189-9 (Version None)
Quarter: 2011Q4

REPORT INFORMATION
  Report Type: 
  Country: None (occurrence: None)
  Receive Date: 20111104
  Receipt Date: 20111104
  Transmission Date: 20120403
  Serious: Yes (Other)
  Sender: FDA-Public Use
  Company Number: None

PATIENT
  Sex: Male
  Weight: 116.5 kg

DRUGS (2)
  1. DEXAMETHASONE [Suspect]
     Dosage: DEXAMETHASONE 4MG IV Q6H IV
     Route: 042
     Dates: start: 20111017
  2. DEXAMETHASONE [Suspect]
     Dosage: DEXAMETHASONE 4MG IV Q6H IV
     Route: 042
     Dates: start: 20111018

REACTIONS (1)
  - TESTICULAR PAIN [None]
